FAERS Safety Report 9522337 (Version 4)
Quarter: 2020Q4

REPORT INFORMATION
  Report Type: Report from Study
  Country: CA (occurrence: CA)
  Receive Date: 20130913
  Receipt Date: 20201110
  Transmission Date: 20210114
  Serious: Yes (Other)
  Sender: FDA-Public Use
  Company Number: CA-JNJFOC-20130903575

PATIENT
  Age: 56 Year
  Sex: Female
  Weight: 78.6 kg

DRUGS (5)
  1. REMICADE [Suspect]
     Active Substance: INFLIXIMAB
     Indication: RHEUMATOID ARTHRITIS
     Route: 042
     Dates: start: 20110805
  2. DORZOLAMIDE [Concomitant]
     Active Substance: DORZOLAMIDE
     Route: 065
  3. PREDNISONE. [Concomitant]
     Active Substance: PREDNISONE
     Route: 047
  4. REMICADE [Suspect]
     Active Substance: INFLIXIMAB
     Indication: GLAUCOMA
     Route: 042
     Dates: start: 201002
  5. TRAVATAN [Concomitant]
     Active Substance: TRAVOPROST
     Route: 065

REACTIONS (2)
  - Influenza [Recovered/Resolved]
  - Osteoporosis [Unknown]

NARRATIVE: CASE EVENT DATE: 201307
